FAERS Safety Report 16035005 (Version 1)
Quarter: 2019Q1

REPORT INFORMATION
  Report Type: Spontaneous
  Country: US (occurrence: US)
  Receive Date: 20190305
  Receipt Date: 20190305
  Transmission Date: 20190418
  Serious: No
  Sender: FDA-Public Use
  Company Number: US-MYLANLABS-2019M1014671

PATIENT

DRUGS (1)
  1. FENTANYL. [Suspect]
     Active Substance: FENTANYL
     Indication: PRODUCT USED FOR UNKNOWN INDICATION
     Dosage: UNK
     Route: 062

REACTIONS (6)
  - Muscle tightness [Unknown]
  - Sleep disorder [Unknown]
  - Night sweats [Unknown]
  - Musculoskeletal discomfort [Unknown]
  - Nausea [Unknown]
  - Withdrawal syndrome [Unknown]
